FAERS Safety Report 7579687-0 (Version None)
Quarter: 2011Q2

REPORT INFORMATION
  Report Type: 
  Country: None (occurrence: None)
  Receive Date: 20110622
  Receipt Date: 20110608
  Transmission Date: 20111010
  Serious: Yes (Hospitalization)
  Sender: FDA-Public Use
  Company Number: PIR#400102872B

PATIENT
  Age: 76 Year
  Sex: Male

DRUGS (1)
  1. CEFTRIAXONE [Suspect]

REACTIONS (3)
  - CHOREOATHETOSIS [None]
  - ALTERED STATE OF CONSCIOUSNESS [None]
  - FEELING ABNORMAL [None]
